FAERS Safety Report 12384406 (Version 1)
Quarter: 2016Q2

REPORT INFORMATION
  Report Type: Spontaneous
  Country: TW (occurrence: TW)
  Receive Date: 20160519
  Receipt Date: 20160519
  Transmission Date: 20160815
  Serious: Yes (Hospitalization)
  Sender: FDA-Public Use
  Company Number: TW-ACCORD-040399

PATIENT
  Age: 53 Year
  Sex: Female

DRUGS (1)
  1. ETOPOSIDE. [Suspect]
     Active Substance: ETOPOSIDE
     Indication: BREAST CANCER
     Route: 048

REACTIONS (3)
  - Hypercalcaemia [Recovered/Resolved]
  - Pneumatosis intestinalis [Recovered/Resolved]
  - Leukopenia [Recovered/Resolved]
